FAERS Safety Report 22337763 (Version 1)
Quarter: 2023Q2

REPORT INFORMATION
  Report Type: Spontaneous
  Country: US (occurrence: US)
  Receive Date: 20230518
  Receipt Date: 20230518
  Transmission Date: 20230721
  Serious: No
  Sender: FDA-Public Use
  Company Number: US-COLLEGIUM PHARMACEUTICAL, INC.-2022CGM00416

PATIENT
  Age: 65 Year
  Sex: Female

DRUGS (2)
  1. OXYCODONE [Suspect]
     Active Substance: OXYCODONE
  2. LENVIMA [Suspect]
     Active Substance: LENVATINIB
     Dosage: 14 MG, 1X/DAY
     Route: 048

REACTIONS (2)
  - Fatigue [Unknown]
  - Balance disorder [Unknown]
